FAERS Safety Report 16438843 (Version 2)
Quarter: 2019Q3

REPORT INFORMATION
  Report Type: Report from Study
  Country: US (occurrence: US)
  Receive Date: 20190617
  Receipt Date: 20190709
  Transmission Date: 20191004
  Serious: Yes (Other)
  Sender: FDA-Public Use
  Company Number: US-UCBSA-2019015684

PATIENT
  Age: 66 Year
  Sex: Female

DRUGS (1)
  1. CERTOLIZUMAB PEGOL [Suspect]
     Active Substance: CERTOLIZUMAB PEGOL
     Indication: RHEUMATOID ARTHRITIS
     Dosage: 400 MILLIGRAM, EV 4 WEEKS
     Route: 058
     Dates: start: 20180907, end: 20190605

REACTIONS (10)
  - Decreased appetite [Unknown]
  - Nausea [Unknown]
  - Fatigue [Unknown]
  - Polymyalgia rheumatica [Unknown]
  - Diarrhoea [Unknown]
  - Dysphonia [Unknown]
  - Pyrexia [Unknown]
  - Retching [Unknown]
  - Inflammation [Unknown]
  - Headache [Unknown]

NARRATIVE: CASE EVENT DATE: 20180909
